FAERS Safety Report 16462598 (Version 1)
Quarter: 2019Q2

REPORT INFORMATION
  Report Type: Spontaneous
  Country: JP (occurrence: JP)
  Receive Date: 20190621
  Receipt Date: 20190621
  Transmission Date: 20190711
  Serious: Yes (Other)
  Sender: FDA-Public Use
  Company Number: JP-ELI_LILLY_AND_COMPANY-JP201906004594

PATIENT
  Age: 63 Year
  Sex: Male

DRUGS (1)
  1. FORTEO [Suspect]
     Active Substance: TERIPARATIDE
     Indication: OSTEOPOROSIS
     Dosage: 20 UG, DAILY
     Route: 058
     Dates: start: 201807, end: 20190611

REACTIONS (9)
  - Blood pressure decreased [Recovered/Resolved]
  - Headache [Unknown]
  - Malaise [Recovered/Resolved]
  - Hypoaesthesia [Unknown]
  - Blood uric acid increased [Recovered/Resolved]
  - Oedema peripheral [Unknown]
  - Arthralgia [Unknown]
  - Nocturia [Unknown]
  - Thirst [Unknown]

NARRATIVE: CASE EVENT DATE: 2019
